FAERS Safety Report 5901713-2 (Version None)
Quarter: 2008Q3

REPORT INFORMATION
  Report Type: 
  Country: None (occurrence: None)
  Receive Date: 20080929
  Receipt Date: 20080922
  Transmission Date: 20090109
  Serious: Yes (Other)
  Sender: FDA-Public Use
  Company Number: B0536374A

PATIENT
  Age: 44 Year
  Sex: Female

DRUGS (3)
  1. SERETIDE [Suspect]
     Indication: ASTHMA
     Dosage: 1PUFF TWICE PER DAY
     Route: 055
  2. VENTOLIN [Suspect]
     Indication: ASTHMA
     Dosage: 1PUFF AS REQUIRED
     Route: 055
  3. SERETIDE [Concomitant]
     Dosage: 2PUFF TWICE PER DAY
     Route: 055
     Dates: start: 20050101

REACTIONS (2)
  - ASTHMA [None]
  - WRONG TECHNIQUE IN DRUG USAGE PROCESS [None]
